FAERS Safety Report 15323325 (Version 3)
Quarter: 2019Q1

REPORT INFORMATION
  Report Type: Spontaneous
  Country: US (occurrence: US)
  Receive Date: 20180827
  Receipt Date: 20190308
  Transmission Date: 20190417
  Serious: Yes (Other)
  Sender: FDA-Public Use
  Company Number: US-PFIZER INC-2018337782

PATIENT
  Age: 64 Year
  Sex: Female

DRUGS (1)
  1. CYTOMEL [Suspect]
     Active Substance: LIOTHYRONINE SODIUM
     Indication: HYPOTHYROIDISM
     Dosage: UNK, 2X/DAY (20 MORN, 10 1/2 AFT)
     Dates: start: 2000, end: 20180827

REACTIONS (7)
  - Swelling [Recovering/Resolving]
  - Drug hypersensitivity [Unknown]
  - Alopecia [Unknown]
  - Personality change [Unknown]
  - Autoimmune thyroiditis [Unknown]
  - Pain [Unknown]
  - Weight increased [Unknown]

NARRATIVE: CASE EVENT DATE: 2000
